FAERS Safety Report 21279756 (Version 1)
Quarter: 2022Q3

REPORT INFORMATION
  Report Type: Spontaneous
  Country: FR (occurrence: FR)
  Receive Date: 20220901
  Receipt Date: 20220901
  Transmission Date: 20221027
  Serious: Yes (Other)
  Sender: FDA-Public Use
  Company Number: None

PATIENT
  Age: 19 Year
  Sex: Female

DRUGS (3)
  1. QUETIAPINE [Interacting]
     Active Substance: QUETIAPINE
     Indication: Antipsychotic therapy
     Dosage: UNK (INCONNUE)
     Route: 048
  2. PAROXETINE HYDROCHLORIDE [Interacting]
     Active Substance: PAROXETINE HYDROCHLORIDE
     Indication: Depression
     Dosage: UNK (INCONNUE)
     Route: 048
  3. LOXAPINE [Interacting]
     Active Substance: LOXAPINE
     Indication: Antipsychotic therapy
     Dosage: 125 MG, ONCE/SINGLE
     Route: 048
     Dates: start: 20220613, end: 20220613

REACTIONS (2)
  - Trismus [Recovered/Resolved]
  - Dyskinesia [Recovered/Resolved]

NARRATIVE: CASE EVENT DATE: 20220614
